FAERS Safety Report 14560102 (Version 2)
Quarter: 2018Q1

REPORT INFORMATION
  Report Type: Report from Study
  Country: None (occurrence: US)
  Receive Date: 20180222
  Receipt Date: 20180301
  Transmission Date: 20180509
  Serious: Yes (Other)
  Sender: FDA-Public Use
  Company Number: US-ABBVIE-18K-163-2260028-00

PATIENT
  Age: 57 Year
  Sex: Male
  Weight: 127.12 kg

DRUGS (5)
  1. HUMIRA [Suspect]
     Active Substance: ADALIMUMAB
     Indication: PSORIASIS
     Route: 058
     Dates: start: 2016, end: 201712
  2. CINNAMON. [Concomitant]
     Active Substance: CINNAMON
     Indication: SUPPLEMENTATION THERAPY
  3. PENICILLIN [Concomitant]
     Active Substance: PENICILLIN
     Indication: SUPPLEMENTATION THERAPY
  4. VITAMIN E [Concomitant]
     Active Substance: .ALPHA.-TOCOPHEROL
     Indication: VITAMIN SUPPLEMENTATION
  5. ASPIRIN. [Concomitant]
     Active Substance: ASPIRIN
     Indication: CARDIOVASCULAR EVENT PROPHYLAXIS

REACTIONS (12)
  - Paranasal sinus hypersecretion [Recovered/Resolved]
  - Sinus congestion [Recovered/Resolved]
  - Decreased appetite [Unknown]
  - Malaise [Unknown]
  - Arthralgia [Unknown]
  - Loss of consciousness [Recovered/Resolved]
  - Bursitis [Unknown]
  - Cardiac flutter [Not Recovered/Not Resolved]
  - Syncope [Recovered/Resolved]
  - Dizziness [Not Recovered/Not Resolved]
  - Nasal congestion [Recovered/Resolved]
  - Arthropathy [Unknown]

NARRATIVE: CASE EVENT DATE: 201709
